FAERS Safety Report 26138167 (Version 1)
Quarter: 2025Q4

REPORT INFORMATION
  Report Type: Report from Study
  Country: US (occurrence: US)
  Receive Date: 20251210
  Receipt Date: 20251210
  Transmission Date: 20260117
  Serious: Yes (Hospitalization, Other)
  Sender: ALEXION PHARMACEUTICALS
  Company Number: US-AstraZeneca-CH-01009574A

PATIENT
  Sex: Female

DRUGS (1)
  1. BUDESONIDE\FORMOTEROL [Suspect]
     Active Substance: BUDESONIDE\FORMOTEROL
     Route: 065

REACTIONS (8)
  - Arthralgia [Unknown]
  - Pulmonary mass [Unknown]
  - Chronic obstructive pulmonary disease [Unknown]
  - Uveitis [Unknown]
  - Retinal vein occlusion [Unknown]
  - Eye disorder [Unknown]
  - Autoimmune disorder [Unknown]
  - Intentional device use issue [Unknown]
